FAERS Safety Report 9868539 (Version 1)
Quarter: 2014Q1

REPORT INFORMATION
  Report Type: Spontaneous
  Country: FR (occurrence: FR)
  Receive Date: 20140204
  Receipt Date: 20140204
  Transmission Date: 20141002
  Serious: Yes (Death)
  Sender: FDA-Public Use
  Company Number: FR-PFIZER INC-2014029774

PATIENT
  Age: 55 Year
  Sex: Male

DRUGS (5)
  1. VORICONAZOLE [Suspect]
     Indication: INFECTION
     Dosage: UNK
     Route: 048
  2. AMPHOTERICIN B [Concomitant]
     Indication: INFECTION
     Dosage: 5 MG/KG DAILY
  3. TACROLIMUS [Concomitant]
     Indication: IMMUNOSUPPRESSANT DRUG THERAPY
     Dosage: UNK
  4. MYCOPHENOLATE MOFETIL [Concomitant]
     Indication: IMMUNOSUPPRESSANT DRUG THERAPY
     Dosage: 1 G, DAILY
  5. PREDNISONE [Concomitant]
     Indication: IMMUNOSUPPRESSANT DRUG THERAPY
     Dosage: 5 MG, DAILY

REACTIONS (3)
  - Drug ineffective for unapproved indication [Fatal]
  - Systemic mycosis [Fatal]
  - Condition aggravated [Fatal]
